FAERS Safety Report 20392567 (Version 1)
Quarter: 2022Q1

REPORT INFORMATION
  Report Type: Spontaneous
  Country: US (occurrence: None)
  Receive Date: 20220128
  Receipt Date: 20220128
  Transmission Date: 20220424
  Serious: Yes (Other)
  Sender: FDA-Public Use
  Company Number: None

PATIENT
  Age: 36 Year
  Sex: Female
  Weight: 89.8 kg

DRUGS (4)
  1. ROCURONIUM [Suspect]
     Active Substance: ROCURONIUM BROMIDE
     Indication: Surgery
     Route: 040
     Dates: start: 20211229, end: 20211229
  2. PROPOFOL [Concomitant]
     Active Substance: PROPOFOL
     Dates: start: 20211229, end: 20211229
  3. FENTANYL [Concomitant]
     Active Substance: FENTANYL
     Dates: start: 20211229, end: 20211229
  4. LIDOCAINE [Concomitant]
     Active Substance: LIDOCAINE
     Dates: start: 20211229, end: 20211229

REACTIONS (3)
  - Blood pressure decreased [None]
  - Heart rate increased [None]
  - Rash [None]

NARRATIVE: CASE EVENT DATE: 20211229
